FAERS Safety Report 6133537-8 (Version None)
Quarter: 2009Q1

REPORT INFORMATION
  Report Type: 
  Country: None (occurrence: None)
  Receive Date: 20090324
  Receipt Date: 20090309
  Transmission Date: 20090719
  Serious: Yes (Other)
  Sender: FDA-Public Use
  Company Number: 2008001345

PATIENT
  Age: 52 Year
  Sex: Male

DRUGS (1)
  1. TARCEVA [Suspect]
     Indication: NON-SMALL CELL LUNG CANCER
     Dosage: (150 MG), ORAL
     Route: 048
     Dates: start: 20080125

REACTIONS (9)
  - DRUG INEFFECTIVE [None]
  - FUNGAL SKIN INFECTION [None]
  - GENITAL INFECTION FUNGAL [None]
  - NAIL BED INFLAMMATION [None]
  - OCULAR HYPERAEMIA [None]
  - RETINAL TEAR [None]
  - RETINITIS [None]
  - SKIN REACTION [None]
  - STOMATITIS [None]
